FAERS Safety Report 11195082 (Version 1)
Quarter: 2015Q2

REPORT INFORMATION
  Report Type: Spontaneous
  Country: IT (occurrence: None)
  Receive Date: 20150615
  Receipt Date: 20150615
  Transmission Date: 20150821
  Serious: Yes (Hospitalization)
  Sender: FDA-Public Use
  Company Number: FK201502806

PATIENT
  Age: 47 Year
  Sex: Female
  Weight: 122 kg

DRUGS (3)
  1. AVASTIN [Suspect]
     Active Substance: BEVACIZUMAB
     Indication: OVARIAN CANCER
     Dosage: 900 MG, CYCLICAL
     Route: 041
     Dates: start: 20140324, end: 20140414
  2. CARBOPLATIN TEVA (CARBOPLATIN) (CARBOPLATIN) [Suspect]
     Active Substance: CARBOPLATIN
     Indication: OVARIAN CANCER
     Dosage: 380 MG, CYCLICAL
     Route: 041
     Dates: start: 20140303, end: 20140414
  3. PACLITAXEL 6MG/ML CONCENTRATE FOR SOLUTION FOR INFUSION (PACLITAXEL) (PACLITAXEL) [Suspect]
     Active Substance: PACLITAXEL
     Indication: OVARIAN CANCER
     Dosage: 280 MG, CYCLICAL
     Route: 041
     Dates: start: 20140303, end: 20140414

REACTIONS (1)
  - Peritoneal abscess [None]

NARRATIVE: CASE EVENT DATE: 20140512
